FAERS Safety Report 25547006 (Version 1)
Quarter: 2025Q3

REPORT INFORMATION
  Report Type: Report from Study
  Country: US (occurrence: US)
  Receive Date: 20250714
  Receipt Date: 20250714
  Transmission Date: 20251021
  Serious: Yes (Other)
  Sender: ALEXION PHARMACEUTICALS
  Company Number: US-AstraZeneca-CH-00906582A

PATIENT
  Sex: Female

DRUGS (2)
  1. OLAPARIB [Suspect]
     Active Substance: OLAPARIB
     Indication: Ovarian cancer
     Dosage: 150 MILLIGRAM, BID
  2. GABAPENTIN [Concomitant]
     Active Substance: GABAPENTIN
     Route: 065

REACTIONS (7)
  - Sleep disorder [Recovering/Resolving]
  - Neuropathy peripheral [Recovering/Resolving]
  - Lethargy [Recovering/Resolving]
  - Multiple allergies [Recovering/Resolving]
  - Asthma [Recovering/Resolving]
  - Hypertension [Recovering/Resolving]
  - Muscle spasms [Recovering/Resolving]
